FAERS Safety Report 22828903 (Version 2)
Quarter: 2024Q1

REPORT INFORMATION
  Report Type: Spontaneous
  Country: US (occurrence: US)
  Receive Date: 20230816
  Receipt Date: 20240130
  Transmission Date: 20240409
  Serious: No
  Sender: FDA-Public Use
  Company Number: US-INCYTE CORPORATION-2023IN007802

PATIENT

DRUGS (1)
  1. OPZELURA [Suspect]
     Active Substance: RUXOLITINIB PHOSPHATE
     Indication: Vulvovaginal pruritus
     Dosage: UNK UNK, BID
     Route: 065

REACTIONS (3)
  - Off label use [Unknown]
  - Product physical issue [Unknown]
  - Urine abnormality [Unknown]
